FAERS Safety Report 5890635-1 (Version None)
Quarter: 2008Q3

REPORT INFORMATION
  Report Type: 
  Country: None (occurrence: None)
  Receive Date: 20080922
  Receipt Date: 20080522
  Transmission Date: 20090109
  Serious: No
  Sender: FDA-Public Use
  Company Number: US-BAYER-200824027NA

PATIENT
  Age: 2 Year
  Sex: Male

DRUGS (3)
  1. CIPRO [Suspect]
     Indication: EAR INFECTION
     Route: 033
  2. SUPPLEMENTS [Concomitant]
  3. VITAMIN TAB [Concomitant]

REACTIONS (1)
  - DIARRHOEA [None]
